FAERS Safety Report 12624148 (Version 2)
Quarter: 2017Q1

REPORT INFORMATION
  Report Type: Report from Study
  Country: DE (occurrence: DE)
  Receive Date: 20160805
  Receipt Date: 20170329
  Transmission Date: 20170428
  Serious: Yes (Death, Other)
  Sender: FDA-Public Use
  Company Number: DE-ROCHE-1808056

PATIENT
  Sex: Female

DRUGS (1)
  1. TOCILIZUMAB [Suspect]
     Active Substance: TOCILIZUMAB
     Indication: RHEUMATOID ARTHRITIS
     Dosage: LAST INFUSION IN DEC/2011
     Route: 042
     Dates: start: 201108

REACTIONS (3)
  - Peritonitis [Unknown]
  - Septic shock [Fatal]
  - Large intestine perforation [Unknown]

NARRATIVE: CASE EVENT DATE: 201201
